FAERS Safety Report 14239797 (Version 5)
Quarter: 2018Q1

REPORT INFORMATION
  Report Type: Spontaneous
  Country: GB (occurrence: GB)
  Receive Date: 20171130
  Receipt Date: 20180304
  Transmission Date: 20180508
  Serious: Yes (Life-Threatening, Hospitalization, Other)
  Sender: FDA-Public Use
  Company Number: GB-TEVA-2017-GB-826213

PATIENT
  Age: 16 Year
  Sex: Male

DRUGS (12)
  1. TEMAZEPAM. [Concomitant]
     Active Substance: TEMAZEPAM
  2. RIFAMPICIN [Concomitant]
     Active Substance: RIFAMPIN
  3. SPIRONOLACTONE. [Concomitant]
     Active Substance: SPIRONOLACTONE
  4. IBUPROFEN. [Concomitant]
     Active Substance: IBUPROFEN
  5. VANCOMYCIN [Concomitant]
     Active Substance: VANCOMYCIN
  6. FUROSEMIDE. [Concomitant]
     Active Substance: FUROSEMIDE
  7. ENOXAPARIN [Concomitant]
     Active Substance: ENOXAPARIN
  8. CEFTRIAXONE. [Concomitant]
     Active Substance: CEFTRIAXONE
  9. PARACETAMOL [Concomitant]
     Active Substance: ACETAMINOPHEN
  10. RANITIDINE. [Suspect]
     Active Substance: RANITIDINE
     Indication: PRODUCT USED FOR UNKNOWN INDICATION
     Route: 065
  11. GENTAMICIN. [Concomitant]
     Active Substance: GENTAMICIN
  12. MEROPENEM. [Concomitant]
     Active Substance: MEROPENEM

REACTIONS (1)
  - Drug reaction with eosinophilia and systemic symptoms [Recovered/Resolved]
